FAERS Safety Report 18442560 (Version 2)
Quarter: 2020Q4

REPORT INFORMATION
  Report Type: Spontaneous
  Country: GB (occurrence: GB)
  Receive Date: 20201029
  Receipt Date: 20201109
  Transmission Date: 20210114
  Serious: Yes (Death, Life-Threatening)
  Sender: FDA-Public Use
  Company Number: GB-MYLANLABS-2020M1091019

PATIENT
  Age: 48 Year
  Sex: Male

DRUGS (5)
  1. SODIUM VALPROATE [Concomitant]
     Active Substance: VALPROATE SODIUM
     Dosage: 2.5 GRAM
  2. CLOZARIL [Suspect]
     Active Substance: CLOZAPINE
     Dosage: 150 MG MANE, 375 MG NOCTE
     Route: 048
  3. METFORMIN [Concomitant]
     Active Substance: METFORMIN HYDROCHLORIDE
     Dosage: 250 MILLIGRAM, QD
  4. SIMVASTATIN. [Concomitant]
     Active Substance: SIMVASTATIN
     Dosage: 40 MILLIGRAM, QD
  5. CLOZARIL [Suspect]
     Active Substance: CLOZAPINE
     Indication: SCHIZOPHRENIA
     Dosage: UNK
     Route: 048
     Dates: start: 20140916

REACTIONS (1)
  - Circulatory collapse [Fatal]

NARRATIVE: CASE EVENT DATE: 20201014
